FAERS Safety Report 23744388 (Version 1)
Quarter: 2024Q2

REPORT INFORMATION
  Report Type: Other
  Country: CA (occurrence: CA)
  Receive Date: 20240415
  Receipt Date: 20240415
  Transmission Date: 20240716
  Serious: Yes (Other)
  Sender: FDA-Public Use
  Company Number: CA-PFIZER INC-202400084298

PATIENT
  Age: 20 Year
  Sex: Male

DRUGS (13)
  1. MENINGOCOCCAL POLYSACCHARIDE VACCINE, GROUPS A, C, Y, W135 COMBINED NO [Suspect]
     Active Substance: MENINGOCOCCAL POLYSACCHARIDE VACCINE, GROUPS A, C, Y,W135 COMBINED
     Indication: Immunisation
     Dosage: UNK, SINGLE
  2. RITUXIMAB [Suspect]
     Active Substance: RITUXIMAB
     Indication: Stiff person syndrome
     Dosage: UNK
     Route: 065
  3. AZATHIOPRINE [Suspect]
     Active Substance: AZATHIOPRINE
     Indication: Stiff person syndrome
     Route: 065
  4. BELIMUMAB [Suspect]
     Active Substance: BELIMUMAB
     Indication: Stiff person syndrome
     Route: 065
  5. BENLYSTA [Suspect]
     Active Substance: BELIMUMAB
     Indication: Stiff person syndrome
  6. ECULIZUMAB [Suspect]
     Active Substance: ECULIZUMAB
     Indication: Stiff person syndrome
     Route: 065
  7. IMMUNE GLOBULIN NOS [Suspect]
     Active Substance: IMMUNE GLOBULIN NOS
     Indication: Stiff person syndrome
     Route: 042
  8. MYCOPHENOLATE MOFETIL [Suspect]
     Active Substance: MYCOPHENOLATE MOFETIL
     Indication: Stiff person syndrome
     Route: 065
  9. PENICILLIN [Suspect]
     Active Substance: PENICILLIN
     Indication: Prophylaxis
  10. PENICILLIN [Suspect]
     Active Substance: PENICILLIN
     Indication: Meningococcal infection
  11. PENICILLIN V POTASSIUM [Suspect]
     Active Substance: PENICILLIN V POTASSIUM
     Indication: Prophylaxis
     Route: 065
  12. PENICILLIN V POTASSIUM [Suspect]
     Active Substance: PENICILLIN V POTASSIUM
     Indication: Meningococcal infection
  13. SOLIRIS [Suspect]
     Active Substance: ECULIZUMAB
     Indication: Stiff person syndrome
     Dosage: UNK

REACTIONS (4)
  - Drug hypersensitivity [Recovered/Resolved]
  - Drug ineffective [Recovered/Resolved]
  - Meningitis meningococcal [Recovered/Resolved]
  - Off label use [Recovered/Resolved]
